FAERS Safety Report 6202672-8 (Version None)
Quarter: 2009Q2

REPORT INFORMATION
  Report Type: 
  Country: None (occurrence: None)
  Receive Date: 20090526
  Receipt Date: 20090420
  Transmission Date: 20091009
  Serious: Yes (Hospitalization)
  Sender: FDA-Public Use
  Company Number: US-PFIZER INC-2009200098

PATIENT
  Sex: Male
  Weight: 49.887 kg

DRUGS (10)
  1. ANIDULAFUNGIN [Suspect]
     Indication: FUNGAL PERITONITIS
     Dosage: 200 MG, 1X/DAY
     Route: 042
     Dates: start: 20090415, end: 20090415
  2. ANIDULAFUNGIN [Suspect]
     Dosage: 100 MG, 1X/DAY
     Route: 042
     Dates: start: 20090416
  3. FAMOTIDINE [Concomitant]
     Dosage: UNK
     Route: 048
     Dates: start: 20090415
  4. HEPARIN [Concomitant]
     Dosage: UNK
     Route: 058
     Dates: start: 20090414
  5. VANCOMYCIN [Concomitant]
     Dosage: UNK
     Route: 033
     Dates: start: 20090410, end: 20090410
  6. VANCOMYCIN [Concomitant]
     Dosage: UNK
     Route: 042
     Dates: start: 20090414, end: 20090414
  7. FLUCONAZOLE [Concomitant]
     Dosage: 1 DOSE PO, 1 DOSE IV
     Route: 042
     Dates: start: 20090414, end: 20090415
  8. MICAFUNGIN SODIUM [Concomitant]
     Dosage: UNK
     Route: 042
     Dates: start: 20090414, end: 20090414
  9. INSULIN GLARGINE [Concomitant]
     Dosage: UNK
     Route: 058
     Dates: start: 20090415
  10. OXYCODONE HYDROCHLORIDE W/PARACETAMOL [Concomitant]
     Dosage: UNK
     Route: 048
     Dates: start: 20090415

REACTIONS (1)
  - PSEUDOMEMBRANOUS COLITIS [None]
